FAERS Safety Report 5861278-0 (Version None)
Quarter: 2008Q3

REPORT INFORMATION
  Report Type: 
  Country: None (occurrence: None)
  Receive Date: 20080827
  Receipt Date: 20080404
  Transmission Date: 20090109
  Serious: No
  Sender: FDA-Public Use
  Company Number: US-ABBOTT-08P-163-0445545-00

PATIENT
  Sex: Male
  Weight: 90.8 kg

DRUGS (5)
  1. COATED PDS [Suspect]
     Indication: BLOOD CHOLESTEROL
     Route: 048
     Dates: start: 20080403
  2. LANTUS [Concomitant]
     Indication: DIABETES MELLITUS
     Route: 058
     Dates: start: 20040101
  3. INSULIN [Concomitant]
     Indication: DIABETES MELLITUS
     Route: 058
     Dates: start: 20040101
  4. PRASTERONE [Concomitant]
     Indication: HORMONE THERAPY
     Route: 048
  5. VENLAFAXINE HCL [Concomitant]
     Indication: ANTIDEPRESSANT THERAPY
     Route: 048

REACTIONS (7)
  - BODY TEMPERATURE INCREASED [None]
  - BURNING SENSATION [None]
  - DIZZINESS [None]
  - PALPITATIONS [None]
  - PRURITUS [None]
  - SUNBURN [None]
  - VISION BLURRED [None]
